FAERS Safety Report 22003239 (Version 1)
Quarter: 2023Q1

REPORT INFORMATION
  Report Type: Spontaneous
  Country: US (occurrence: None)
  Receive Date: 20230217
  Receipt Date: 20230217
  Transmission Date: 20230418
  Serious: No
  Sender: FDA-Public Use
  Company Number: 2023A019496

PATIENT
  Sex: Female

DRUGS (16)
  1. CALQUENCE [Suspect]
     Active Substance: ACALABRUTINIB
     Dosage: 1.0MG UNKNOWN
     Route: 048
  2. DUPIXENT [Suspect]
     Active Substance: DUPILUMAB
     Indication: Eosinophilic oesophagitis
     Route: 058
  3. LORAZEPAM [Suspect]
     Active Substance: LORAZEPAM
     Dosage: 20.0MG UNKNOWN
  4. PREDNISONE [Suspect]
     Active Substance: PREDNISONE
     Dosage: 31.0MG UNKNOWN
  5. FAMOTIDINE [Suspect]
     Active Substance: FAMOTIDINE
     Dosage: 10.0MG UNKNOWN
  6. XOPENEX [Suspect]
     Active Substance: LEVALBUTEROL HYDROCHLORIDE
  7. ASMANEX [Suspect]
     Active Substance: MOMETASONE FUROATE
     Dosage: 31.0MG UNKNOWN
  8. SINGULAIR [Suspect]
     Active Substance: MONTELUKAST SODIUM
     Dosage: 20.0MG UNKNOWN
     Route: 048
  9. LEXAPRO [Suspect]
     Active Substance: ESCITALOPRAM OXALATE
     Dosage: 10.0MG UNKNOWN
  10. SYNTHROID [Suspect]
     Active Substance: LEVOTHYROXINE SODIUM
     Dosage: 40.0MG UNKNOWN
  11. ZYRTEC [Suspect]
     Active Substance: CETIRIZINE HYDROCHLORIDE
     Dosage: 40.0MG UNKNOWN
  12. VITAMIN D [Concomitant]
     Active Substance: VITAMIN D NOS
  13. VITAMIN C [Concomitant]
     Active Substance: ASCORBIC ACID
  14. FLUTICASONE PROPIONATE [Concomitant]
     Active Substance: FLUTICASONE PROPIONATE
  15. DIPHENHYDRAMINE HYDROCHLORIDE [Concomitant]
     Active Substance: DIPHENHYDRAMINE HYDROCHLORIDE
  16. PROMETHAZINE [Concomitant]
     Active Substance: PROMETHAZINE HYDROCHLORIDE

REACTIONS (6)
  - Petechiae [Unknown]
  - Rash [Unknown]
  - Flushing [Unknown]
  - Swelling of eyelid [Unknown]
  - Periorbital swelling [Unknown]
  - Incorrect dosage administered [Unknown]
